FAERS Safety Report 5079158-X (Version None)
Quarter: 2006Q3

REPORT INFORMATION
  Report Type: 
  Country: None (occurrence: None)
  Receive Date: 20060814
  Receipt Date: 20060727
  Transmission Date: 20061208
  Serious: Yes (Disabling)
  Sender: FDA-Public Use
  Company Number: US-GLAXOSMITHKLINE-A0616305A

PATIENT
  Age: 87 Year
  Sex: Female
  Weight: 43.2 kg

DRUGS (16)
  1. COREG [Suspect]
     Indication: CARDIAC FAILURE CONGESTIVE
     Dosage: 6.25MG TWICE PER DAY
     Route: 048
     Dates: start: 20050301, end: 20051010
  2. COUMADIN [Concomitant]
  3. VYTORIN [Concomitant]
     Dates: end: 20051005
  4. SOMA [Concomitant]
  5. QUININE SULFATE [Concomitant]
  6. FOLIC ACID [Concomitant]
  7. DIGOXIN [Concomitant]
     Dosage: .06MG PER DAY
  8. FERROSEQUEL [Concomitant]
  9. ACIPHEX [Concomitant]
     Dosage: 20MG PER DAY
  10. ASPIRIN [Concomitant]
     Dosage: 81MG PER DAY
  11. ASCORBIC ACID [Concomitant]
     Dosage: 500MG PER DAY
  12. CENTRUM [Concomitant]
  13. OSCAL [Concomitant]
  14. ACETAMINOPHEN [Concomitant]
  15. FOSAMAX [Concomitant]
  16. TRUSOPT [Concomitant]

REACTIONS (6)
  - BLOOD PRESSURE DECREASED [None]
  - CHILLS [None]
  - DIZZINESS [None]
  - HYPOTHERMIA [None]
  - SYNCOPE [None]
  - TREMOR [None]
